FAERS Safety Report 17280795 (Version 5)
Quarter: 2020Q1

REPORT INFORMATION
  Report Type: Spontaneous
  Country: IL (occurrence: IL)
  Receive Date: 20200117
  Receipt Date: 20200225
  Transmission Date: 20200409
  Serious: Yes (Death, Other)
  Sender: FDA-Public Use
  Company Number: IL-CELLTRION INC.-2020IL017780

PATIENT

DRUGS (10)
  1. FUSID [FUSIDIC ACID] [Concomitant]
     Active Substance: FUSIDIC ACID
  2. PREDNISONE. [Concomitant]
     Active Substance: PREDNISONE
     Dosage: 60 MG
     Dates: start: 20191117
  3. PREDNISONE. [Concomitant]
     Active Substance: PREDNISONE
     Dosage: TAPERING OF PREDNISONE
     Dates: start: 20191205
  4. ALLORIL [Concomitant]
     Active Substance: ALLOPURINOL
     Indication: BLOOD URIC ACID INCREASED
  5. NEULASTIM [Concomitant]
     Active Substance: PEGFILGRASTIM
     Dosage: UNK
     Dates: start: 20191205
  6. ALLORIL [Concomitant]
     Active Substance: ALLOPURINOL
     Indication: BLOOD CREATININE ABNORMAL
  7. TRUXIMA [Suspect]
     Active Substance: RITUXIMAB-ABBS
     Indication: DIFFUSE LARGE B-CELL LYMPHOMA
     Dosage: 375 MG/M2, SINGLE
     Route: 042
     Dates: start: 20191204
  8. BENDAMUSTINE [Concomitant]
     Active Substance: BENDAMUSTINE
     Dosage: BENDAMUSTINE S.K. 25 MG ONCE
     Dates: start: 20191203
  9. PRADAXA [Concomitant]
     Active Substance: DABIGATRAN ETEXILATE MESYLATE
     Dosage: UNK
  10. CLEXANE [Concomitant]
     Active Substance: ENOXAPARIN SODIUM
     Dosage: UNK

REACTIONS (6)
  - Pneumonitis [Not Recovered/Not Resolved]
  - Pneumonia [Unknown]
  - Death [Fatal]
  - Respiratory disorder [Not Recovered/Not Resolved]
  - C-reactive protein increased [Recovering/Resolving]
  - Disease progression [Fatal]

NARRATIVE: CASE EVENT DATE: 20191212
